FAERS Safety Report 7743444-2 (Version None)
Quarter: 2011Q3

REPORT INFORMATION
  Report Type: 
  Country: None (occurrence: None)
  Receive Date: 20110912
  Receipt Date: 20110830
  Transmission Date: 20111222
  Serious: Yes (Other)
  Sender: FDA-Public Use
  Company Number: FR-VALEANT-2011VX002642

PATIENT
  Age: 71 Year
  Sex: Female

DRUGS (4)
  1. XANAX [Concomitant]
     Route: 048
  2. ZOLPIDEM [Concomitant]
     Route: 048
  3. TIMOLOL MALEATE [Suspect]
     Route: 047
     Dates: start: 20020101, end: 20110301
  4. XALATAN [Concomitant]
     Route: 065
     Dates: start: 20030301

REACTIONS (3)
  - CUTANEOUS LUPUS ERYTHEMATOSUS [None]
  - CHEILITIS [None]
  - DEPRESSION [None]
